FAERS Safety Report 7809054-3 (Version None)
Quarter: 2011Q4

REPORT INFORMATION
  Report Type: 
  Country: None (occurrence: None)
  Receive Date: 20111012
  Receipt Date: 20111007
  Transmission Date: 20120403
  Serious: Yes (Other)
  Sender: FDA-Public Use
  Company Number: BR-ABBOTT-11P-020-0862336-00

PATIENT
  Sex: Male
  Weight: 79 kg

DRUGS (5)
  1. LITHIUM CARBONATE [Concomitant]
     Indication: NERVOUS SYSTEM DISORDER
     Route: 048
  2. CLONAZEPAM [Concomitant]
     Indication: INSOMNIA
     Route: 048
  3. HALOPERIDOL [Concomitant]
     Indication: SCHIZOPHRENIA
     Route: 048
  4. AMITRIPTYLINE HYDROCHLORIDE [Concomitant]
     Indication: DEPRESSION
     Route: 048
  5. AKINETON [Suspect]
     Indication: PARKINSON'S DISEASE
     Route: 048

REACTIONS (9)
  - HALLUCINATION [None]
  - ANXIETY [None]
  - DRY MOUTH [None]
  - AGITATION [None]
  - CONSTIPATION [None]
  - HEADACHE [None]
  - MEMORY IMPAIRMENT [None]
  - URINARY RETENTION [None]
  - HAEMATOCHEZIA [None]
